FAERS Safety Report 4698558-0 (Version None)
Quarter: 2005Q2

REPORT INFORMATION
  Report Type: 
  Country: None (occurrence: None)
  Receive Date: 20050622
  Receipt Date: 20050610
  Transmission Date: 20051028
  Serious: Yes (Other)
  Sender: FDA-Public Use
  Company Number: 215248

PATIENT
  Age: 6 Year
  Sex: Female
  Weight: 18.1 kg

DRUGS (4)
  1. NUTROPIN AQ [Suspect]
     Indication: GROWTH RETARDATION
     Dosage: 0.8 MG, QD, SUBCUTANEOUS
     Route: 058
     Dates: start: 20041001
  2. ALBUTEROL (ALBUGTEROL SULFATE, ALBUTEROL) [Concomitant]
  3. NASONEX [Concomitant]
  4. PREVACID [Concomitant]

REACTIONS (1)
  - ATELECTASIS [None]
